FAERS Safety Report 4525419-X (Version None)
Quarter: 2004Q4

REPORT INFORMATION
  Report Type: 
  Country: None (occurrence: None)
  Receive Date: 20041213
  Receipt Date: 20041201
  Transmission Date: 20050328
  Serious: Yes (Life-Threatening)
  Sender: FDA-Public Use
  Company Number: GB-GLAXOSMITHKLINE-B0359046A

PATIENT
  Age: 41 Year
  Sex: Male
  Weight: 85 kg

DRUGS (1)
  1. BECONASE [Suspect]
     Dosage: 50MCG SINGLE DOSE
     Dates: start: 20041121, end: 20041121

REACTIONS (2)
  - BRONCHOSPASM [None]
  - CORNEAL REFLEX DECREASED [None]
